FAERS Safety Report 24089646 (Version 1)
Quarter: 2024Q3

REPORT INFORMATION
  Report Type: Spontaneous
  Country: US (occurrence: US)
  Receive Date: 20240715
  Receipt Date: 20240715
  Transmission Date: 20241016
  Serious: Yes (Other)
  Sender: DR REDDYS
  Company Number: US-DRL-USA-LIT/USA/24/0010099

PATIENT
  Age: 80 Year
  Sex: Female

DRUGS (4)
  1. DOXORUBICIN [Suspect]
     Active Substance: DOXORUBICIN
     Indication: Cutaneous lymphoma
     Dosage: 6 CYCLES
  2. CYCLOPHOSPHAMIDE [Suspect]
     Active Substance: CYCLOPHOSPHAMIDE
     Indication: Cutaneous lymphoma
     Dosage: 6 CYCLES
  3. BRENTUXIMAB VEDOTIN [Suspect]
     Active Substance: BRENTUXIMAB VEDOTIN
     Indication: Cutaneous lymphoma
     Dosage: 6 CYCLES
  4. PREDNISONE [Suspect]
     Active Substance: PREDNISONE
     Indication: Cutaneous lymphoma
     Dosage: 6 CYCLES

REACTIONS (5)
  - Neuropathy peripheral [Unknown]
  - Fatigue [Unknown]
  - Diarrhoea [Unknown]
  - Weight decreased [Unknown]
  - Product use in unapproved indication [Unknown]
